FAERS Safety Report 5417850-5 (Version None)
Quarter: 2007Q3

REPORT INFORMATION
  Report Type: 
  Country: None (occurrence: None)
  Receive Date: 20070815
  Receipt Date: 20070730
  Transmission Date: 20080115
  Serious: Yes (Hospitalization)
  Sender: FDA-Public Use
  Company Number: 2007BI012337

PATIENT
  Age: 55 Year
  Sex: Female

DRUGS (5)
  1. NATALIZUMAB [Suspect]
     Indication: MULTIPLE SCLEROSIS
     Dosage: 300 MG;QM;IV
     Route: 042
     Dates: start: 20061219, end: 20070101
  2. AMBIEN [Concomitant]
  3. CALCIUM CHLORIDE [Concomitant]
  4. VITAMIN B [Concomitant]
  5. VITAMIN D [Concomitant]

REACTIONS (8)
  - ATRIOVENTRICULAR BLOCK FIRST DEGREE [None]
  - AUTONOMIC NERVOUS SYSTEM IMBALANCE [None]
  - DEHYDRATION [None]
  - ENCEPHALITIS [None]
  - ENTEROCOCCAL INFECTION [None]
  - HYPOTHERMIA [None]
  - MENINGITIS VIRAL [None]
  - URINARY TRACT INFECTION [None]
